FAERS Safety Report 26050455 (Version 2)
Quarter: 2025Q4

REPORT INFORMATION
  Report Type: Spontaneous
  Country: US (occurrence: US)
  Receive Date: 20251116
  Receipt Date: 20251222
  Transmission Date: 20260117
  Serious: No
  Sender: ELI LILLY AND COMPANY
  Company Number: US-ELI_LILLY_AND_COMPANY-US202511005530

PATIENT
  Age: 80 Year
  Sex: Female

DRUGS (3)
  1. ZEPBOUND [Suspect]
     Active Substance: TIRZEPATIDE
     Indication: Weight control
     Dosage: 2.5 MG, UNKNOWN
     Route: 058
     Dates: start: 20251015
  2. ZEPBOUND [Suspect]
     Active Substance: TIRZEPATIDE
     Indication: Sleep apnoea syndrome
  3. ZEPBOUND [Suspect]
     Active Substance: TIRZEPATIDE
     Indication: Cardiac disorder

REACTIONS (7)
  - Extra dose administered [Unknown]
  - Hyperhidrosis [Unknown]
  - Headache [Recovering/Resolving]
  - Arthralgia [Unknown]
  - Dysgeusia [Unknown]
  - Constipation [Unknown]
  - Gastrooesophageal reflux disease [Unknown]
